FAERS Safety Report 22908881 (Version 3)
Quarter: 2023Q4

REPORT INFORMATION
  Report Type: Report from Study
  Country: RU (occurrence: RU)
  Receive Date: 20230905
  Receipt Date: 20231010
  Transmission Date: 20240110
  Serious: Yes (Hospitalization)
  Sender: FDA-Public Use
  Company Number: RU-002147023-NVSC2023RU103444

PATIENT
  Age: 68 Year
  Sex: Female
  Weight: 80 kg

DRUGS (5)
  1. LETROZOLE [Suspect]
     Active Substance: LETROZOLE
     Indication: HER2 negative breast cancer
     Dosage: 2.5 MG, QD
     Route: 048
     Dates: start: 20190709
  2. INDAPAMIDE\PERINDOPRIL ERBUMINE [Concomitant]
     Active Substance: INDAPAMIDE\PERINDOPRIL ERBUMINE
     Indication: Hypertension
     Dosage: 4 MG (1/2 TAB), BID
     Route: 048
     Dates: start: 20100510
  3. Ketonal [Concomitant]
     Indication: Pain
     Dosage: 200 MG, BID
     Route: 048
     Dates: start: 20230220
  4. Pentalgin [Concomitant]
     Indication: Ocular hyperaemia
     Dosage: 1 TABLET BID
     Route: 048
     Dates: start: 20230530
  5. Pentalgin [Concomitant]
     Indication: Eye pain

REACTIONS (7)
  - Keratouveitis [Recovered/Resolved]
  - Open angle glaucoma [Recovered/Resolved]
  - Cataract [Recovered/Resolved]
  - Iridocyclitis [Recovered/Resolved with Sequelae]
  - Herpes ophthalmic [Recovered/Resolved with Sequelae]
  - Keratouveitis [Recovered/Resolved with Sequelae]
  - Herpes ophthalmic [Recovered/Resolved with Sequelae]

NARRATIVE: CASE EVENT DATE: 20230417
